FAERS Safety Report 10427202 (Version 1)
Quarter: 2014Q3

REPORT INFORMATION
  Report Type: Spontaneous
  Country: US (occurrence: US)
  Receive Date: 20140903
  Receipt Date: 20140903
  Transmission Date: 20150326
  Serious: No
  Sender: FDA-Public Use
  Company Number: US-BAYER-2014-128896

PATIENT
  Sex: Female

DRUGS (1)
  1. GADAVIST [Suspect]
     Active Substance: GADOBUTROL
     Indication: IMAGING PROCEDURE
     Dosage: 10 ML, ONCE

REACTIONS (5)
  - Paraesthesia oral [None]
  - Off label use [None]
  - Throat irritation [None]
  - Oral pruritus [None]
  - Eye pruritus [None]
